FAERS Safety Report 15121200 (Version 3)
Quarter: 2018Q3

REPORT INFORMATION
  Report Type: Spontaneous
  Country: US (occurrence: US)
  Receive Date: 20180709
  Receipt Date: 20180908
  Transmission Date: 20181010
  Serious: No
  Sender: FDA-Public Use
  Company Number: US-JNJFOC-20180632049

PATIENT
  Sex: Female
  Weight: 77.11 kg

DRUGS (19)
  1. PERCOCET [Concomitant]
     Active Substance: ACETAMINOPHEN\OXYCODONE HYDROCHLORIDE
     Route: 065
  2. DOXYCYCLINE. [Concomitant]
     Active Substance: DOXYCYCLINE
  3. TREMFYA [Suspect]
     Active Substance: GUSELKUMAB
     Indication: PSORIASIS
     Route: 058
     Dates: start: 201712
  4. HUMULIN R [Concomitant]
     Active Substance: INSULIN HUMAN
     Route: 065
  5. DIFLUCAN [Concomitant]
     Active Substance: FLUCONAZOLE
  6. FLAXSEED [Concomitant]
     Active Substance: FLAX SEED
     Route: 065
  7. XYZAL [Concomitant]
     Active Substance: LEVOCETIRIZINE DIHYDROCHLORIDE
     Route: 065
  8. ALBUTEROL. [Concomitant]
     Active Substance: ALBUTEROL
     Route: 065
  9. XANAX [Concomitant]
     Active Substance: ALPRAZOLAM
  10. LACHYDRIN [Concomitant]
  11. JANUMET [Concomitant]
     Active Substance: METFORMIN HYDROCHLORIDE\SITAGLIPTIN PHOSPHATE
     Route: 065
  12. DOVONEX [Concomitant]
     Active Substance: CALCIPOTRIENE
  13. CLOBETASONE [Concomitant]
     Active Substance: CLOBETASONE
  14. CYMBALTA [Concomitant]
     Active Substance: DULOXETINE HYDROCHLORIDE
  15. KETOCONAZOLE. [Concomitant]
     Active Substance: KETOCONAZOLE
  16. TRIAMCINOLONE [Concomitant]
     Active Substance: TRIAMCINOLONE
  17. ENALAPRIL [Concomitant]
     Active Substance: ENALAPRIL
     Route: 065
  18. PRILOSEC [Concomitant]
     Active Substance: OMEPRAZOLE MAGNESIUM
  19. BETAMETHASONE. [Concomitant]
     Active Substance: BETAMETHASONE

REACTIONS (3)
  - Sinus congestion [Unknown]
  - Upper-airway cough syndrome [Unknown]
  - Headache [Unknown]
